FAERS Safety Report 5782869-1 (Version None)
Quarter: 2008Q2

REPORT INFORMATION
  Report Type: 
  Country: None (occurrence: None)
  Receive Date: 20080624
  Receipt Date: 20080612
  Transmission Date: 20081010
  Serious: Yes (Other)
  Sender: FDA-Public Use
  Company Number: BR-JNJFOC-20080603128

PATIENT
  Age: 71 Year
  Sex: Male

DRUGS (1)
  1. KETOCONAZOLE [Suspect]
     Indication: CUSHING'S SYNDROME
     Route: 065

REACTIONS (3)
  - CHOLESTASIS [None]
  - CORTISOL FREE URINE DECREASED [None]
  - HEPATIC FUNCTION ABNORMAL [None]
